FAERS Safety Report 10103881 (Version 1)
Quarter: 2014Q2

REPORT INFORMATION
  Report Type: Spontaneous
  Country: US (occurrence: US)
  Receive Date: 20140424
  Receipt Date: 20140424
  Transmission Date: 20141212
  Serious: Yes (Hospitalization)
  Sender: FDA-Public Use
  Company Number: US-MPIJNJ-2014MPI001207

PATIENT
  Sex: Male

DRUGS (12)
  1. VELCADE [Suspect]
     Indication: PLASMA CELL MYELOMA
     Dosage: 3.5 MG, 2/WEEK (MON AND THUR)
     Route: 058
  2. DEXAMETHASONE [Concomitant]
     Dosage: 4 MG, UNK
     Dates: end: 20140417
  3. ALPRAZOLAM [Concomitant]
     Dosage: 0.5 MG, UNK
  4. FERROUS SULFATE [Concomitant]
     Dosage: 325 MG, UNK
  5. HYDROCODONE [Concomitant]
     Dosage: 10 MG, UNK
  6. LACTULOSE [Concomitant]
     Dosage: 10 MG, UNK
  7. LISINOPRIL [Concomitant]
     Dosage: 10 MG, UNK
  8. MORPHINE [Concomitant]
     Dosage: 15 MG, UNK
  9. NIFEDIPINE [Concomitant]
     Dosage: 10 MG, UNK
  10. PANTOPRAZOLE [Concomitant]
     Dosage: 20 MG, UNK
  11. PROCHLORPERAZINE [Concomitant]
     Dosage: 10 MG, UNK
  12. REVLIMID [Concomitant]
     Dosage: 25 MG, UNK

REACTIONS (1)
  - Stent placement [Unknown]
